FAERS Safety Report 5287562-X (Version None)
Quarter: 2007Q1

REPORT INFORMATION
  Report Type: 
  Country: None (occurrence: None)
  Receive Date: 20070126
  Receipt Date: 20061027
  Transmission Date: 20070707
  Serious: No
  Sender: FDA-Public Use
  Company Number: 2006CT000826

PATIENT
  Age: 43 Year
  Sex: Female
  Weight: 49.8957 kg

DRUGS (11)
  1. VENTAVIS [Suspect]
     Indication: PULMONARY HYPERTENSION
     Dosage: 2.5 UG/4XD;INH
     Route: 055
     Dates: start: 20060726
  2. PROMETHAZINE [Concomitant]
  3. METOCLOPRAMIDE [Concomitant]
  4. DIPHENHYDRAMINE HCL [Concomitant]
  5. FENTANYL [Concomitant]
  6. AMBIEN [Concomitant]
  7. WARFARIN SODIUM [Concomitant]
  8. MORPHINE [Concomitant]
  9. METHADONE HCL [Concomitant]
  10. OXYBUTYNIN CHLORIDE [Concomitant]
  11. ESTROGENS CONJUGATED [Concomitant]

REACTIONS (2)
  - CHEST PAIN [None]
  - TREMOR [None]
